FAERS Safety Report 19437083 (Version 1)
Quarter: 2021Q2

REPORT INFORMATION
  Report Type: Report from Study
  Country: DE (occurrence: DE)
  Receive Date: 20210618
  Receipt Date: 20210618
  Transmission Date: 20210717
  Serious: Yes (Hospitalization, Other)
  Sender: FDA-Public Use
  Company Number: DE-MYLANLABS-2021M1035724

PATIENT
  Sex: Female
  Weight: 88 kg

DRUGS (3)
  1. KISQALI [Suspect]
     Active Substance: RIBOCICLIB
     Dosage: 600 MILLIGRAM, QD (SCHEMA, 21 DAYS INTAKE, 7 DAYS PAUSE)
     Route: 048
     Dates: start: 20200320
  2. KISQALI [Suspect]
     Active Substance: RIBOCICLIB
     Indication: BREAST CANCER METASTATIC
     Dosage: 600 MILLIGRAM, QD (SCHEMA, 21 DAYS INTAKE, 7 DAYS PAUSE)
     Route: 048
     Dates: start: 20191126, end: 20200309
  3. LETROZOLE. [Suspect]
     Active Substance: LETROZOLE
     Indication: BREAST CANCER METASTATIC
     Dosage: 2.5 MILLIGRAM, QD
     Route: 048
     Dates: start: 20191126

REACTIONS (2)
  - Anaemia [Not Recovered/Not Resolved]
  - Neutropenia [Recovering/Resolving]

NARRATIVE: CASE EVENT DATE: 20200318
